FAERS Safety Report 9139809 (Version 1)
Quarter: 2013Q1

REPORT INFORMATION
  Report Type: Spontaneous
  Country: US (occurrence: US)
  Receive Date: 20130305
  Receipt Date: 20130305
  Transmission Date: 20140127
  Serious: No
  Sender: FDA-Public Use
  Company Number: US-ENDO PHARMACEUTICALS INC.-SPLN20120157

PATIENT
  Age: 11 None
  Sex: Female
  Weight: 43.3 kg

DRUGS (3)
  1. SUPPRELIN LA [Suspect]
     Indication: PRECOCIOUS PUBERTY
     Route: 058
     Dates: start: 20110303, end: 20120403
  2. SUPPRELIN LA [Suspect]
     Route: 058
     Dates: start: 20120403
  3. VYVANSE [Concomitant]
     Indication: ATTENTION DEFICIT/HYPERACTIVITY DISORDER
     Route: 065
     Dates: start: 2010, end: 20120420

REACTIONS (5)
  - Device breakage [Recovered/Resolved]
  - Puberty [Not Recovered/Not Resolved]
  - Procedural complication [Not Recovered/Not Resolved]
  - Weight increased [Not Recovered/Not Resolved]
  - Drug ineffective [Not Recovered/Not Resolved]
